FAERS Safety Report 18292975 (Version 1)
Quarter: 2020Q3

REPORT INFORMATION
  Report Type: Spontaneous
  Country: US (occurrence: US)
  Receive Date: 20200921
  Receipt Date: 20200921
  Transmission Date: 20201103
  Serious: Yes (Hospitalization)
  Sender: FDA-Public Use
  Company Number: US-HLS-202000420

PATIENT
  Sex: Male

DRUGS (1)
  1. CLOZAPINE. [Suspect]
     Active Substance: CLOZAPINE
     Route: 065

REACTIONS (5)
  - Amnesia [Unknown]
  - Constipation [Not Recovered/Not Resolved]
  - Dental caries [Not Recovered/Not Resolved]
  - Paranoia [Unknown]
  - Delusion [Unknown]

NARRATIVE: CASE EVENT DATE: 201912
